FAERS Safety Report 4686990-0 (Version None)
Quarter: 2005Q2

REPORT INFORMATION
  Report Type: 
  Country: None (occurrence: None)
  Receive Date: 20050606
  Receipt Date: 20050526
  Transmission Date: 20051028
  Serious: Yes (Death, Other)
  Sender: FDA-Public Use
  Company Number: JP_030901870

PATIENT
  Age: 67 Year
  Sex: Male
  Weight: 55 kg

DRUGS (10)
  1. GEMZAR [Suspect]
     Indication: PANCREATIC CARCINOMA
     Dosage: 800 MG OTHER
     Route: 050
     Dates: start: 20030418, end: 20030814
  2. NU LOTAN (LOSARTAN POTASSIUM) [Concomitant]
  3. AMLODIPINE BESYLATE [Concomitant]
  4. DIAZEPAM [Concomitant]
  5. JUVELA (TOCOPHEROL) [Concomitant]
  6. LIPITOR [Concomitant]
  7. LOXONIN (LOXOPROFEN SODUM) [Concomitant]
  8. SULPERAZON [Concomitant]
  9. GASMOTIN (MOSAPRIDE CITRATE) [Concomitant]
  10. PREDNISOLONE [Concomitant]

REACTIONS (6)
  - CHILLS [None]
  - GASTROINTESTINAL STENOSIS [None]
  - HEADACHE [None]
  - PNEUMONIA ASPIRATION [None]
  - PYREXIA [None]
  - TUMOUR INVASION [None]
